FAERS Safety Report 25166990 (Version 1)
Quarter: 2025Q2

REPORT INFORMATION
  Report Type: Spontaneous
  Country: FR (occurrence: FR)
  Receive Date: 20250407
  Receipt Date: 20250407
  Transmission Date: 20250717
  Serious: Yes (Hospitalization)
  Sender: AUROBINDO
  Company Number: FR-AFSSAPS-PO2025000245

PATIENT
  Age: 1 Day
  Sex: Male
  Weight: 2.3 kg

DRUGS (5)
  1. SERTRALINE [Suspect]
     Active Substance: SERTRALINE HYDROCHLORIDE
     Indication: Post-traumatic stress disorder
     Dosage: 500 MILLIGRAM, 3 TIMES A DAY
     Route: 064
     Dates: start: 20240510, end: 20241225
  2. LEVETIRACETAM [Suspect]
     Active Substance: LEVETIRACETAM
     Indication: Idiopathic generalised epilepsy
     Dosage: 500 MILLIGRAM, 3 TIMES A DAY
     Route: 064
     Dates: start: 20240624, end: 20241225
  3. VALPROATE SODIUM [Suspect]
     Active Substance: VALPROATE SODIUM
     Indication: Idiopathic generalised epilepsy
     Dosage: 1000 MILLIGRAM, ONCE A DAY (500 MG MORNING AND EVENING)
     Route: 064
     Dates: start: 20240510, end: 20240625
  4. CLOBAZAM [Suspect]
     Active Substance: CLOBAZAM
     Indication: Idiopathic generalised epilepsy
     Dosage: 10 MILLIGRAM, 3 TIMES A DAY
     Route: 064
     Dates: start: 20240624, end: 20241013
  5. CLOBAZAM [Suspect]
     Active Substance: CLOBAZAM
     Dosage: 5 MILLIGRAM, TWO TIMES A DAY
     Route: 064
     Dates: start: 20241014, end: 20241225

REACTIONS (2)
  - Exposure during pregnancy [Recovered/Resolved]
  - Premature baby [Recovered/Resolved]

NARRATIVE: CASE EVENT DATE: 20241225
